FAERS Safety Report 26146347 (Version 1)
Quarter: 2025Q4

REPORT INFORMATION
  Report Type: Spontaneous
  Country: CN (occurrence: CN)
  Receive Date: 20251211
  Receipt Date: 20251211
  Transmission Date: 20260118
  Serious: Yes (Other)
  Sender: NOVARTIS
  Company Number: CN-002147023-NVSC2025CN188278

PATIENT
  Sex: Female
  Weight: 12.8 kg

DRUGS (1)
  1. CANAKINUMAB [Suspect]
     Active Substance: CANAKINUMAB
     Indication: Hyper IgD syndrome
     Dosage: 4 MG/KG (TWICE EVERY 4 WEEKS)
     Route: 058

REACTIONS (2)
  - Pneumonia [Recovering/Resolving]
  - Off label use [Unknown]
